FAERS Safety Report 12492233 (Version 1)
Quarter: 2016Q2

REPORT INFORMATION
  Report Type: Spontaneous
  Country: US (occurrence: None)
  Receive Date: 20160622
  Receipt Date: 20160622
  Transmission Date: 20160815
  Serious: Yes (Hospitalization)
  Sender: FDA-Public Use
  Company Number: None

PATIENT
  Age: 93 Year
  Sex: Female
  Weight: 41.4 kg

DRUGS (1)
  1. CARBAMAZEPINE. [Suspect]
     Active Substance: CARBAMAZEPINE
     Indication: SEIZURE
     Route: 048
     Dates: start: 20140609

REACTIONS (6)
  - Nitrite urine present [None]
  - Fall [None]
  - Seizure [None]
  - Laceration [None]
  - Bacterial test [None]
  - Urine leukocyte esterase positive [None]

NARRATIVE: CASE EVENT DATE: 20160513
